FAERS Safety Report 13139938 (Version 3)
Quarter: 2017Q1

REPORT INFORMATION
  Report Type: Spontaneous
  Country: US (occurrence: US)
  Receive Date: 20170123
  Receipt Date: 20170216
  Transmission Date: 20170428
  Serious: Yes (Other)
  Sender: FDA-Public Use
  Company Number: PHEH2017US001563

PATIENT
  Age: 74 Year
  Sex: Female

DRUGS (3)
  1. LOVENOX [Concomitant]
     Active Substance: ENOXAPARIN SODIUM
     Indication: PRODUCT USED FOR UNKNOWN INDICATION
     Dosage: 2 DF, QD
     Route: 065
  2. VOTRIENT [Suspect]
     Active Substance: PAZOPANIB HYDROCHLORIDE
     Indication: RENAL CANCER
     Dosage: 800 MG, QD
     Route: 048
     Dates: start: 20161210, end: 20170120
  3. LOVENOX [Concomitant]
     Active Substance: ENOXAPARIN SODIUM
     Dosage: 1 DF, QD
     Route: 065

REACTIONS (12)
  - Liver function test increased [Unknown]
  - Fatigue [Unknown]
  - Abdominal discomfort [Unknown]
  - Frequent bowel movements [Unknown]
  - Gingival pain [Unknown]
  - Dyspepsia [Unknown]
  - Nausea [Unknown]
  - Vomiting [Unknown]
  - Diarrhoea [Unknown]
  - Haemorrhage [Unknown]
  - Oral pain [Unknown]
  - Decreased appetite [Unknown]

NARRATIVE: CASE EVENT DATE: 20161213
